FAERS Safety Report 10235883 (Version 1)
Quarter: 2014Q2

REPORT INFORMATION
  Report Type: Spontaneous
  Country: FR (occurrence: None)
  Receive Date: 20140611
  Receipt Date: 20140611
  Transmission Date: 20141212
  Serious: Yes (Hospitalization)
  Sender: FDA-Public Use
  Company Number: 2014000181

PATIENT
  Age: 84 Year
  Sex: Male

DRUGS (10)
  1. ACEON [Suspect]
     Indication: PRODUCT USED FOR UNKNOWN INDICATION
     Route: 048
     Dates: start: 201106, end: 20110430
  2. METFORMIN (METFORMIN) [Concomitant]
  3. KREDEX (CARVEDILOL) [Concomitant]
  4. TAHOR (ATORVASTATIN CALCIUM) [Concomitant]
  5. KARDEGIC (ACETYLSALICYLATE LYSINE) [Concomitant]
  6. COLCHIMAX (COLCHICINE, PAPAVER SOMNIFERUM POWDER, TIEMONIUM METHYLSUPHATE) [Concomitant]
  7. HYDROCORTISONE (HYDROCORTISONE) [Concomitant]
  8. MOVICOL (MACROGOL 3350, POTASSIUM CHLORIDE, SODIUM BICARBONATE, SODIUM CHLORIDE) [Concomitant]
  9. PARACETAMOL (PARACETAMOL) [Concomitant]
  10. OXYCONTIN (OXYCODONE HYDROCHLORIDE) [Concomitant]

REACTIONS (4)
  - Decreased appetite [None]
  - Renal failure acute [None]
  - Asthenia [None]
  - Anion gap increased [None]
